FAERS Safety Report 24264779 (Version 1)
Quarter: 2024Q3

REPORT INFORMATION
  Report Type: Spontaneous
  Country: US (occurrence: US)
  Receive Date: 20240829
  Receipt Date: 20240829
  Transmission Date: 20241016
  Serious: Yes (Other)
  Sender: UCB
  Company Number: US-UCBSA-2024041788

PATIENT
  Age: 42 Year
  Sex: Male

DRUGS (1)
  1. CIMZIA [Suspect]
     Active Substance: CERTOLIZUMAB PEGOL
     Indication: Psoriatic arthropathy
     Dosage: 400 MILLIGRAM, EV 4 WEEKS, UNDER THE SKIN
     Route: 058
     Dates: start: 202106

REACTIONS (2)
  - Psoriatic arthropathy [Recovering/Resolving]
  - Dermatitis contact [Recovering/Resolving]

NARRATIVE: CASE EVENT DATE: 20240701
